FAERS Safety Report 7068619-X (Version None)
Quarter: 2010Q4

REPORT INFORMATION
  Report Type: 
  Country: None (occurrence: None)
  Receive Date: 20101028
  Receipt Date: 20101021
  Transmission Date: 20110411
  Serious: Yes (Other)
  Sender: FDA-Public Use
  Company Number: US-B.I. PHARMACEUTICALS,INC./RIDGEFIELD-2010-BP-11798BP

PATIENT
  Age: 61 Year
  Sex: Female

DRUGS (3)
  1. MIRAPEX [Suspect]
  2. AVONEX [Suspect]
     Indication: MULTIPLE SCLEROSIS
     Dosage: WEEKLY
     Route: 030
     Dates: start: 20010209, end: 20030101
  3. AVONEX [Suspect]
     Dosage: LIQUID, WEEKLY
     Route: 030
     Dates: start: 20030101

REACTIONS (1)
  - CONVULSION [None]
